FAERS Safety Report 8805138 (Version 1)
Quarter: 2012Q4

REPORT INFORMATION
  Report Type: 
  Country: US (occurrence: US)
  Receive Date: 20120924
  Receipt Date: 20120924
  Transmission Date: 20130627
  Serious: No
  Sender: FDA-Public Use
  Company Number: US-ALLERGAN-1208544US

PATIENT
  Age: 71 Year
  Sex: Female

DRUGS (6)
  1. LUMIGAN� 0.01% [Suspect]
     Indication: GLAUCOMA
     Dosage: 2 Gtt, UNK
     Route: 047
     Dates: start: 201203
  2. LUMIGAN� 0.01% [Suspect]
     Indication: OPTIC NERVE DISORDER
     Route: 047
  3. METFORMIN [Concomitant]
     Indication: DIABETES
     Dosage: UNK
     Route: 048
  4. GLIMEPIRIDE [Concomitant]
     Indication: DIABETES
     Dosage: UNK
     Route: 048
     Dates: start: 20120227
  5. HCTZ [Concomitant]
     Indication: HYPERTENSION
     Dosage: 25 mg, UNK
     Route: 048
  6. ATENOLOL [Concomitant]
     Indication: PREMATURE VENTRICULAR CONTRACTIONS
     Dosage: UNK
     Route: 048

REACTIONS (1)
  - Dysgeusia [Not Recovered/Not Resolved]
